FAERS Safety Report 5555847-5 (Version None)
Quarter: 2007Q4

REPORT INFORMATION
  Report Type: 
  Country: None (occurrence: None)
  Receive Date: 20071213
  Receipt Date: 20071128
  Transmission Date: 20080405
  Serious: Yes (Hospitalization)
  Sender: FDA-Public Use
  Company Number: NL-PFIZER INC-2007100857

PATIENT
  Sex: Female

DRUGS (12)
  1. AMLODIPINE [Suspect]
     Indication: HYPERTENSION
     Dosage: DAILY DOSE:15MG
     Route: 048
     Dates: start: 20070808, end: 20070815
  2. AMLODIPINE [Suspect]
     Dosage: DAILY DOSE:15MG
     Route: 048
  3. ATENOLOL [Suspect]
     Indication: HYPERTENSION
     Dosage: DAILY DOSE:100MG
     Route: 048
  4. QUESTRAN [Suspect]
     Dosage: DAILY DOSE:4MG
     Route: 048
  5. AMLODIPINE [Suspect]
     Indication: RENAL CELL CARCINOMA STAGE UNSPECIFIED
     Route: 048
     Dates: start: 20070712, end: 20070717
  6. AMLODIPINE [Suspect]
     Route: 048
     Dates: start: 20070723, end: 20070725
  7. AMLODIPINE [Suspect]
     Route: 048
     Dates: start: 20070726, end: 20070729
  8. AMLODIPINE [Suspect]
     Route: 048
     Dates: start: 20070730, end: 20070807
  9. AMLODIPINE [Suspect]
     Route: 048
     Dates: start: 20070808, end: 20071008
  10. PARACETAMOL [Concomitant]
     Indication: HEADACHE
     Route: 048
  11. OXAZEPAM [Concomitant]
     Indication: SLEEP DISORDER
     Route: 048
     Dates: start: 20070530
  12. FLUCLOXACILLIN [Concomitant]
     Indication: SKIN INFECTION
     Dosage: DAILY DOSE:4000MG
     Route: 048
     Dates: start: 20070918

REACTIONS (1)
  - BURSITIS [None]
